FAERS Safety Report 6804693-0 (Version None)
Quarter: 2010Q2

REPORT INFORMATION
  Report Type: 
  Country: None (occurrence: None)
  Receive Date: 20100628
  Receipt Date: 20070517
  Transmission Date: 20101027
  Serious: No
  Sender: FDA-Public Use
  Company Number: US-PFIZER INC-2007021200

PATIENT
  Age: 35 Year
  Sex: Male
  Weight: 74.84 kg

DRUGS (2)
  1. GEODON [Suspect]
     Indication: BIPOLAR DISORDER
  2. PAXIL [Concomitant]
     Indication: DEPRESSION

REACTIONS (1)
  - SEDATION [None]
